FAERS Safety Report 8322505-3 (Version None)
Quarter: 2012Q2

REPORT INFORMATION
  Report Type: 
  Country: None (occurrence: None)
  Receive Date: 20120430
  Receipt Date: 20100202
  Transmission Date: 20120825
  Serious: No
  Sender: FDA-Public Use
  Company Number: US-TEVA-2010000620

PATIENT
  Sex: Male
  Weight: 113.05 kg

DRUGS (10)
  1. ALLOPURINOL [Concomitant]
  2. MELOXICAM [Concomitant]
  3. LISINOPRIL [Concomitant]
  4. RANITIDINE [Concomitant]
  5. SIMVASTATIN [Concomitant]
  6. NUVIGIL [Suspect]
     Indication: SLEEP APNOEA SYNDROME
     Dosage: 250 MILLIGRAM;
     Route: 048
     Dates: start: 20090624
  7. HYDRALAZINE HCL [Concomitant]
  8. AVODART [Concomitant]
  9. LEVOTHYROXINE SODIUM [Concomitant]
  10. LORATADINE [Concomitant]

REACTIONS (1)
  - MOUTH ULCERATION [None]
